FAERS Safety Report 8881414 (Version 1)
Quarter: 2012Q4

REPORT INFORMATION
  Report Type: 
  Country: US (occurrence: US)
  Receive Date: 20121101
  Receipt Date: 20121101
  Transmission Date: 20130627
  Serious: Yes (Other)
  Sender: FDA-Public Use
  Company Number: US-PFIZER INC-2012268391

PATIENT
  Sex: Female

DRUGS (1)
  1. TOVIAZ [Suspect]
     Dosage: UNK

REACTIONS (6)
  - Urinary retention [Unknown]
  - Nasopharyngitis [Unknown]
  - Dry throat [Unknown]
  - Cough [Unknown]
  - Infection [Unknown]
  - Pollakiuria [Unknown]
